FAERS Safety Report 11128881 (Version 2)
Quarter: 2015Q2

REPORT INFORMATION
  Report Type: Report from Study
  Country: DE (occurrence: DE)
  Receive Date: 20150521
  Receipt Date: 20150609
  Transmission Date: 20150821
  Serious: Yes (Death, Other)
  Sender: FDA-Public Use
  Company Number: DE-ABBVIE-15P-062-1395355-00

PATIENT
  Sex: Female

DRUGS (1)
  1. DUODOPA [Suspect]
     Active Substance: CARBIDOPA\LEVODOPA
     Indication: PARKINSON^S DISEASE
     Dosage: 3.3ML/H-7AM TO 10PM
     Route: 050
     Dates: start: 2005, end: 20150519

REACTIONS (8)
  - Cerebrovascular insufficiency [Fatal]
  - Respiratory failure [Unknown]
  - Overdose [Unknown]
  - Somnolence [Unknown]
  - Restless legs syndrome [Unknown]
  - Multi-organ failure [Fatal]
  - Arteriosclerosis [Fatal]
  - Dysphagia [Unknown]
